FAERS Safety Report 12859656 (Version 1)
Quarter: 2016Q4

REPORT INFORMATION
  Report Type: Spontaneous
  Country: US (occurrence: US)
  Receive Date: 20161018
  Receipt Date: 20161018
  Transmission Date: 20170207
  Serious: No
  Sender: FDA-Public Use
  Company Number: US-RISING PHARMACEUTICALS, INC.-2015RIS00140

PATIENT
  Age: 56 Year
  Sex: Female

DRUGS (2)
  1. PROCTOZONE-HC [Suspect]
     Active Substance: HYDROCORTISONE
     Indication: RASH PRURITIC
     Dosage: UNK
     Route: 061
  2. UNSPECIFIED MEDICATIONS [Concomitant]
     Active Substance: UNSPECIFIED INGREDIENT

REACTIONS (1)
  - Drug ineffective [Unknown]
